FAERS Safety Report 5307431-6 (Version None)
Quarter: 2007Q2

REPORT INFORMATION
  Report Type: 
  Country: None (occurrence: None)
  Receive Date: 20070425
  Receipt Date: 20070410
  Transmission Date: 20071010
  Serious: Yes (Death, Hospitalization)
  Sender: FDA-Public Use
  Company Number: US-SHR-US-2006-030154

PATIENT
  Age: 64 Year
  Sex: Male
  Weight: 112.47 kg

DRUGS (14)
  1. BETASERON [Suspect]
     Indication: SECONDARY PROGRESSIVE MULTIPLE SCLEROSIS
     Dosage: 4 MIU, EVERY 2D
     Route: 058
     Dates: start: 20060801, end: 20060901
  2. BETASERON [Suspect]
     Dosage: 6 MIU, EVERY 2D
     Route: 058
     Dates: start: 20060901, end: 20060901
  3. BETASERON [Suspect]
     Dosage: 8 MIU, EVERY 2D
     Route: 058
     Dates: start: 20060901, end: 20060929
  4. BETASERON [Suspect]
     Dosage: 2 MIU, EVERY 2D
     Route: 058
     Dates: start: 20060808, end: 20060801
  5. NOVDOG [Concomitant]
  6. LANTUS [Concomitant]
  7. METFORMIN HCL [Concomitant]
  8. BENADRYL [Concomitant]
  9. DITROPAN                                /USA/ [Concomitant]
  10. CRESTOR [Concomitant]
  11. LOPRESSOR [Concomitant]
  12. DIGITEK [Concomitant]
  13. COUMADIN [Concomitant]
  14. BENICAR [Concomitant]

REACTIONS (8)
  - EYE PAIN [None]
  - FEELING ABNORMAL [None]
  - HEADACHE [None]
  - INTRACRANIAL ANEURYSM [None]
  - MUSCULOSKELETAL STIFFNESS [None]
  - NECK PAIN [None]
  - NEURALGIA [None]
  - PAIN IN EXTREMITY [None]
